FAERS Safety Report 9790953 (Version 1)
Quarter: 2013Q4

REPORT INFORMATION
  Report Type: Spontaneous
  Country: FR (occurrence: FR)
  Receive Date: 20131231
  Receipt Date: 20131231
  Transmission Date: 20140711
  Serious: Yes (Life-Threatening)
  Sender: FDA-Public Use
  Company Number: FR-PFIZER INC-2013371207

PATIENT
  Age: 65 Year
  Sex: Male

DRUGS (5)
  1. SOLU-MEDROL [Suspect]
     Indication: PREMEDICATION
     Dosage: 60 MG, UNK
     Route: 042
     Dates: start: 20131113, end: 20131113
  2. ERBITUX [Suspect]
     Indication: COLORECTAL CANCER METASTATIC
     Dosage: 960 MG, UNK
     Route: 042
     Dates: start: 20131113, end: 20131113
  3. ERBITUX [Suspect]
     Indication: CHEMOTHERAPY
  4. PERFALGAN [Suspect]
     Indication: PREMEDICATION
     Dosage: UNK
     Route: 042
     Dates: start: 20131113, end: 20131113
  5. POLARAMINE [Suspect]
     Indication: PREMEDICATION
     Dosage: 5 MG, UNK
     Dates: start: 20131113, end: 20131113

REACTIONS (3)
  - Type I hypersensitivity [Recovered/Resolved]
  - Bronchospasm [Recovered/Resolved]
  - Cardio-respiratory arrest [Recovered/Resolved]
